FAERS Safety Report 17523815 (Version 2)
Quarter: 2020Q2

REPORT INFORMATION
  Report Type: Report from Study
  Country: US (occurrence: US)
  Receive Date: 20200310
  Receipt Date: 20200428
  Transmission Date: 20200713
  Serious: Yes (Hospitalization)
  Sender: FDA-Public Use
  Company Number: US-ACTELION-A-US2020-202773

PATIENT
  Age: 36 Year
  Sex: Female

DRUGS (2)
  1. IODINE. [Suspect]
     Active Substance: IODINE
     Indication: CATHETERISATION CARDIAC
     Route: 065
  2. OPSUMIT [Suspect]
     Active Substance: MACITENTAN
     Indication: PULMONARY ARTERIAL HYPERTENSION
     Dosage: 10 MG, QD
     Route: 048
     Dates: start: 20170907

REACTIONS (8)
  - Dysphagia [Recovered/Resolved]
  - Ovarian cyst [Unknown]
  - Product dose omission [Unknown]
  - Catheterisation cardiac [Recovered/Resolved]
  - Memory impairment [Unknown]
  - Contrast media reaction [Recovered/Resolved]
  - Throat tightness [Recovered/Resolved]
  - Thrombosis [Unknown]

NARRATIVE: CASE EVENT DATE: 20200223
